FAERS Safety Report 19004070 (Version 2)
Quarter: 2021Q1

REPORT INFORMATION
  Report Type: Report from Study
  Country: EG (occurrence: EG)
  Receive Date: 20210312
  Receipt Date: 20210315
  Transmission Date: 20210420
  Serious: Yes (Other)
  Sender: FDA-Public Use
  Company Number: NVSC2021EG050854

PATIENT
  Age: 54 Year
  Sex: Female

DRUGS (3)
  1. ALKAPRESS [Concomitant]
     Active Substance: AMLODIPINE BESYLATE
     Dosage: 1/2 DF, QD (STARTED 2 YEARS AGO)
     Route: 065
  2. TASIGNA [Suspect]
     Active Substance: NILOTINIB
     Indication: CHRONIC MYELOID LEUKAEMIA
     Dosage: 4 DF, QD (STARTED 6 YEARS AGO)
     Route: 065
  3. ALKAPRESS [Concomitant]
     Active Substance: AMLODIPINE BESYLATE
     Indication: PRODUCT USED FOR UNKNOWN INDICATION
     Dosage: 1 DF, QD (STARTED 2 YEARS AGO)
     Route: 065

REACTIONS (5)
  - Hypertension [Recovering/Resolving]
  - Bone pain [Recovering/Resolving]
  - Visual impairment [Recovering/Resolving]
  - Hypersensitivity [Not Recovered/Not Resolved]
  - Urogenital haemorrhage [Recovered/Resolved]
